FAERS Safety Report 16995286 (Version 2)
Quarter: 2020Q2

REPORT INFORMATION
  Report Type: Report from Study
  Country: US (occurrence: US)
  Receive Date: 20191105
  Receipt Date: 20200522
  Transmission Date: 20200713
  Serious: Yes (Other)
  Sender: FDA-Public Use
  Company Number: PHHY2018US068919

PATIENT
  Age: 33 Year
  Sex: Female

DRUGS (3)
  1. COPAXONE [Suspect]
     Active Substance: GLATIRAMER ACETATE
     Indication: PRODUCT USED FOR UNKNOWN INDICATION
     Route: 065
  2. GILENYA [Suspect]
     Active Substance: FINGOLIMOD HYDROCHLORIDE
     Indication: MULTIPLE SCLEROSIS
     Dosage: UNK, QD
     Route: 048
  3. TYSABRI [Suspect]
     Active Substance: NATALIZUMAB
     Indication: PRODUCT USED FOR UNKNOWN INDICATION
     Route: 065

REACTIONS (17)
  - Lymphocyte count decreased [Unknown]
  - Hemiparesis [Recovered/Resolved]
  - Blood bilirubin increased [Unknown]
  - White blood cell count increased [Unknown]
  - Sinus tachycardia [Recovered/Resolved]
  - Abdominal pain [Recovered/Resolved]
  - Non-cardiac chest pain [Unknown]
  - Ovarian cyst [Not Recovered/Not Resolved]
  - Alanine aminotransferase increased [Unknown]
  - Pain in extremity [Not Recovered/Not Resolved]
  - Optic neuropathy [Not Recovered/Not Resolved]
  - Anaphylactic reaction [Recovered/Resolved]
  - Injection site reaction [Unknown]
  - Acne [Not Recovered/Not Resolved]
  - Chest discomfort [Not Recovered/Not Resolved]
  - Aspartate aminotransferase increased [Unknown]
  - Eye pain [Unknown]

NARRATIVE: CASE EVENT DATE: 20171213
